FAERS Safety Report 8054718-2 (Version None)
Quarter: 2012Q1

REPORT INFORMATION
  Report Type: 
  Country: None (occurrence: None)
  Receive Date: 20120119
  Receipt Date: 20120112
  Transmission Date: 20120608
  Serious: No
  Sender: FDA-Public Use
  Company Number: US-PFIZER INC-2012003988

PATIENT
  Sex: Female
  Weight: 63 kg

DRUGS (7)
  1. LYRICA [Suspect]
     Indication: FIBROMYALGIA
     Dosage: 50 MG, 2X/DAY
     Route: 048
     Dates: start: 20060101
  2. LYRICA [Suspect]
     Dosage: 75MG
     Route: 048
  3. TRAZODONE [Concomitant]
     Indication: INSOMNIA
     Dosage: ONE TABLET
  4. LYRICA [Suspect]
     Dosage: 150 MG, 1X/DAY
     Route: 048
  5. METHADONE [Concomitant]
     Dosage: 10 MG
  6. LYRICA [Suspect]
     Dosage: 150 MG, 2X/DAY
     Route: 048
  7. PROZAC [Concomitant]
     Indication: DEPRESSION
     Dosage: UNK

REACTIONS (3)
  - SKIN DISCOLOURATION [None]
  - PRURITUS [None]
  - PAIN IN EXTREMITY [None]
